FAERS Safety Report 11509680 (Version 1)
Quarter: 2015Q3

REPORT INFORMATION
  Report Type: Spontaneous
  Country: US (occurrence: US)
  Receive Date: 20150915
  Receipt Date: 20150915
  Transmission Date: 20151125
  Serious: No
  Sender: FDA-Public Use
  Company Number: US-JNJFOC-20150709623

PATIENT
  Age: 87 Year
  Sex: Female

DRUGS (1)
  1. TYLENOL EXTRA STRENGTH [Suspect]
     Active Substance: ACETAMINOPHEN
     Indication: ARTHRALGIA
     Dosage: 1 TO 2 TABLETS AS NEEDED, BUT NOT MORE THAN 6 IN A DAY
     Route: 048
     Dates: end: 20150629

REACTIONS (3)
  - Dysphagia [Recovered/Resolved]
  - Product difficult to swallow [Unknown]
  - Incorrect dose administered [Recovered/Resolved]

NARRATIVE: CASE EVENT DATE: 20150629
